FAERS Safety Report 8003805-3 (Version None)
Quarter: 2011Q4

REPORT INFORMATION
  Report Type: 
  Country: None (occurrence: None)
  Receive Date: 20111222
  Receipt Date: 20111213
  Transmission Date: 20120403
  Serious: Yes (Hospitalization)
  Sender: FDA-Public Use
  Company Number: JP-CELGENEUS-087-21660-11071644

PATIENT
  Age: 58 Year
  Sex: Female
  Weight: 43 kg

DRUGS (1)
  1. ABRAXANE [Suspect]
     Indication: BREAST CANCER METASTATIC
     Dosage: 350 MILLIGRAM
     Route: 065
     Dates: start: 20110509, end: 20110627

REACTIONS (1)
  - HERPES ZOSTER [None]
